FAERS Safety Report 18646305 (Version 1)
Quarter: 2020Q4

REPORT INFORMATION
  Report Type: Spontaneous
  Country: US (occurrence: US)
  Receive Date: 20201222
  Receipt Date: 20201222
  Transmission Date: 20210114
  Serious: Yes (Other)
  Sender: FDA-Public Use
  Company Number: US-SA-2020SA363533

PATIENT

DRUGS (2)
  1. ZANTAC [Suspect]
     Active Substance: RANITIDINE HYDROCHLORIDE
     Indication: DYSPEPSIA
     Dosage: 150 MG, QD
     Dates: start: 199801, end: 201501
  2. ZANTAC [Suspect]
     Active Substance: RANITIDINE HYDROCHLORIDE
     Indication: GASTROOESOPHAGEAL REFLUX DISEASE

REACTIONS (7)
  - Small intestine carcinoma stage IV [Unknown]
  - Neoplasm malignant [Unknown]
  - Gastric cancer stage IV [Unknown]
  - Gallbladder cancer stage IV [Unknown]
  - Hepatic cancer stage IV [Unknown]
  - Bladder cancer [Unknown]
  - Gastrointestinal carcinoma [Unknown]

NARRATIVE: CASE EVENT DATE: 20180401
